FAERS Safety Report 6512778-1 (Version None)
Quarter: 2009Q4

REPORT INFORMATION
  Report Type: 
  Country: None (occurrence: None)
  Receive Date: 20091217
  Receipt Date: 20091214
  Transmission Date: 20100525
  Serious: Yes (Hospitalization, Other)
  Sender: FDA-Public Use
  Company Number: 188290

PATIENT
  Age: 71 Year
  Sex: Male
  Weight: 40.82 kg

DRUGS (7)
  1. CYTARABINE [Suspect]
     Indication: ACUTE MYELOID LEUKAEMIA
     Dosage: 20 MG/M2, 1 DAY, SUBCUTANEOUS; 20 MG/M2 (1 DAY; 20 MG/M2 (1 DAY) 20 MG/M2 (1 DAY); 42.4 MG (1 DAY)
     Route: 058
     Dates: start: 20081118, end: 20081127
  2. CYTARABINE [Suspect]
     Indication: ACUTE MYELOID LEUKAEMIA
     Dosage: 20 MG/M2, 1 DAY, SUBCUTANEOUS; 20 MG/M2 (1 DAY; 20 MG/M2 (1 DAY) 20 MG/M2 (1 DAY); 42.4 MG (1 DAY)
     Route: 058
     Dates: start: 20081118, end: 20090505
  3. BACTRIM [Concomitant]
  4. FLUCONAZOLE [Concomitant]
  5. RAMIPRIL [Concomitant]
  6. BETAXOLOL [Concomitant]
  7. ATORVASTATIN CALCIUM [Concomitant]

REACTIONS (12)
  - BLOOD CALCIUM DECREASED [None]
  - BLOOD CHLORIDE INCREASED [None]
  - BONE MARROW FAILURE [None]
  - CULTURE STOOL POSITIVE [None]
  - DIARRHOEA [None]
  - ENTEROBACTER INFECTION [None]
  - ESCHERICHIA INFECTION [None]
  - HAEMORRHOIDS [None]
  - KLEBSIELLA INFECTION [None]
  - PANCYTOPENIA [None]
  - PYREXIA [None]
  - VIRAL TEST POSITIVE [None]
